FAERS Safety Report 5648953-8 (Version None)
Quarter: 2008Q1

REPORT INFORMATION
  Report Type: 
  Country: None (occurrence: None)
  Receive Date: 20080304
  Receipt Date: 20080229
  Transmission Date: 20080703
  Serious: Yes (Hospitalization)
  Sender: FDA-Public Use
  Company Number: NL-AVENTIS-200614126GDDC

PATIENT
  Age: 73 Year
  Sex: Female

DRUGS (6)
  1. DOCETAXEL [Suspect]
     Indication: NON-SMALL CELL LUNG CANCER
     Route: 042
     Dates: start: 20060412, end: 20060412
  2. CARBOPLATIN [Suspect]
     Indication: NON-SMALL CELL LUNG CANCER
     Route: 042
     Dates: start: 20060412, end: 20060412
  3. CODE UNBROKEN [Suspect]
     Indication: NON-SMALL CELL LUNG CANCER
     Dosage: DOSE: 2 CAPSULES
     Route: 048
     Dates: start: 20060323, end: 20060425
  4. DEXAMETHASONE TAB [Concomitant]
  5. ZOFRAN [Concomitant]
  6. METOCLOPRAMIDE HCL [Concomitant]

REACTIONS (5)
  - HYPOKALAEMIA [None]
  - MALAISE [None]
  - NAUSEA [None]
  - NEUTROPENIA [None]
  - VOMITING [None]
